FAERS Safety Report 9002194 (Version 1)
Quarter: 2013Q1

REPORT INFORMATION
  Report Type: Spontaneous
  Country: US (occurrence: None)
  Receive Date: 20130103
  Receipt Date: 20130103
  Transmission Date: 20140127
  Serious: Yes (Hospitalization, Other)
  Sender: FDA-Public Use
  Company Number: None

PATIENT
  Age: 68 Year
  Sex: Female
  Weight: 84.5 kg

DRUGS (1)
  1. MIRAPEX [Suspect]
     Indication: RESTLESS LEGS SYNDROME
     Dosage: 0.75 MG  BID  PO
     Route: 048
     Dates: start: 20120101, end: 20121001

REACTIONS (10)
  - Respiratory failure [None]
  - Sleep terror [None]
  - Hypersomnia [None]
  - Oedema peripheral [None]
  - Atrial fibrillation [None]
  - Gait disturbance [None]
  - Syncope [None]
  - Mental status changes [None]
  - Somnolence [None]
  - Dyspnoea [None]
